FAERS Safety Report 17873902 (Version 1)
Quarter: 2020Q2

REPORT INFORMATION
  Report Type: Spontaneous
  Country: US (occurrence: US)
  Receive Date: 20200609
  Receipt Date: 20200609
  Transmission Date: 20200714
  Serious: Yes (Other)
  Sender: FDA-Public Use
  Company Number: US-CADILA HEALTHCARE LIMITED-US-ZYDUS-051616

PATIENT

DRUGS (7)
  1. GABAPENTINE [Suspect]
     Active Substance: GABAPENTIN
     Indication: PAIN
     Dosage: UNK
     Route: 065
  2. CAMPHOR [Suspect]
     Active Substance: CAMPHOR
     Indication: PAIN
     Dosage: UNK
     Route: 065
  3. PRILOCAINE [Suspect]
     Active Substance: PRILOCAINE
     Indication: PAIN
     Dosage: UNK
     Route: 065
  4. KETOPROFEN. [Suspect]
     Active Substance: KETOPROFEN
     Indication: PAIN
     Dosage: UNK
     Route: 065
  5. LIDOCAINE. [Suspect]
     Active Substance: LIDOCAINE
     Indication: PAIN
     Route: 065
  6. MENTHOL. [Suspect]
     Active Substance: MENTHOL
     Indication: PAIN
     Dosage: UNK
     Route: 065
  7. CLONIDINE. [Suspect]
     Active Substance: CLONIDINE
     Indication: PAIN
     Dosage: UNK
     Route: 065

REACTIONS (6)
  - Accidental exposure to product [Unknown]
  - Bradycardia [Unknown]
  - Hypotension [Unknown]
  - Hypothermia [Unknown]
  - Apnoea [Unknown]
  - Mental status changes [Unknown]
